FAERS Safety Report 10075896 (Version 2)
Quarter: 2014Q2

REPORT INFORMATION
  Report Type: Spontaneous
  Country: US (occurrence: US)
  Receive Date: 20140414
  Receipt Date: 20140425
  Transmission Date: 20141212
  Serious: Yes (Hospitalization, Other)
  Sender: FDA-Public Use
  Company Number: 2014SP001062

PATIENT
  Age: 29 Year
  Sex: Male
  Weight: 90 kg

DRUGS (5)
  1. LATUDA [Suspect]
     Indication: SCHIZOAFFECTIVE DISORDER
     Route: 048
     Dates: start: 201104, end: 2013
  2. LATUDA [Suspect]
     Indication: BIPOLAR DISORDER
     Route: 048
     Dates: start: 201104, end: 2013
  3. INVEGA [Suspect]
     Indication: SCHIZOAFFECTIVE DISORDER
     Dates: start: 201212
  4. INVEGA [Suspect]
     Indication: BIPOLAR DISORDER
     Dates: start: 201212
  5. TRILEPTAL [Concomitant]

REACTIONS (13)
  - Intentional overdose [Unknown]
  - Drug ineffective [None]
  - Hepatic function abnormal [Unknown]
  - Agitation [Unknown]
  - Abnormal behaviour [Unknown]
  - Psychomotor skills impaired [Unknown]
  - Aggression [Unknown]
  - Extrapyramidal disorder [Recovered/Resolved]
  - Insomnia [Not Recovered/Not Resolved]
  - Anaemia [Recovered/Resolved]
  - Fatigue [Recovered/Resolved]
  - Bipolar disorder [Unknown]
  - Schizoaffective disorder [Unknown]
